FAERS Safety Report 6264929-4 (Version None)
Quarter: 2009Q3

REPORT INFORMATION
  Report Type: 
  Country: None (occurrence: None)
  Receive Date: 20090713
  Receipt Date: 20070328
  Transmission Date: 20100115
  Serious: Yes (Hospitalization, Other)
  Sender: FDA-Public Use
  Company Number: US-ASTRAZENECA-2005UW13294

PATIENT
  Age: 12560 Day
  Sex: Female
  Weight: 93 kg

DRUGS (21)
  1. SEROQUEL [Suspect]
     Indication: DEPRESSION
     Route: 048
     Dates: start: 20020205, end: 20040514
  2. SEROQUEL [Suspect]
     Indication: BIPOLAR DISORDER
     Route: 048
     Dates: start: 20020205, end: 20040514
  3. SEROQUEL [Suspect]
     Dosage: 200 - 800 MG
     Route: 048
     Dates: start: 20020205
  4. SEROQUEL [Suspect]
     Dosage: 200 - 800 MG
     Route: 048
     Dates: start: 20020205
  5. RISPERDAL [Concomitant]
     Dates: start: 20040601, end: 20040701
  6. PAXIL [Concomitant]
     Dates: start: 20000101
  7. TEMAZEPAM [Concomitant]
  8. NEURONTIN [Concomitant]
     Indication: ANXIETY
     Route: 048
     Dates: start: 20020524
  9. XANAX [Concomitant]
     Dosage: 1 - 2 MG FLUCTUATING
     Route: 048
  10. ACTOS [Concomitant]
     Route: 048
  11. VICODIN [Concomitant]
     Dosage: 500 - 5 MG, 750 - 7.5 MG AS NEEDED
     Route: 048
  12. KEFLEX [Concomitant]
     Route: 048
  13. TRAZODONE [Concomitant]
     Dosage: 50 MG - 300 MG FLUCTUATING
     Route: 048
  14. DARVOCET-N 100 [Concomitant]
     Dosage: 100 - 650 MG AS NEEDED
     Route: 048
  15. METFORMIN HCL [Concomitant]
     Route: 048
  16. ZONISAMIDE [Concomitant]
     Route: 048
  17. AMITRIPTYLINE [Concomitant]
  18. CELEXA [Concomitant]
  19. REMERON [Concomitant]
  20. PROPRANOLOL HYDROCHLORIDE [Concomitant]
  21. ATENOLOL [Concomitant]
     Route: 048

REACTIONS (11)
  - ADENOMYOSIS [None]
  - BLOOD GLUCOSE ABNORMAL [None]
  - DIABETES MELLITUS [None]
  - DYSPAREUNIA [None]
  - GLAUCOMA [None]
  - HYSTERECTOMY [None]
  - PELVIC PAIN [None]
  - RECTOCELE [None]
  - STRESS URINARY INCONTINENCE [None]
  - URETHRAL DISORDER [None]
  - WEIGHT INCREASED [None]
